FAERS Safety Report 4507381-9 (Version None)
Quarter: 2004Q4

REPORT INFORMATION
  Report Type: 
  Country: None (occurrence: None)
  Receive Date: 20041118
  Receipt Date: 20041105
  Transmission Date: 20050328
  Serious: Yes (Other)
  Sender: FDA-Public Use
  Company Number: 2004088987

PATIENT
  Sex: Male

DRUGS (7)
  1. VFEND [Suspect]
     Indication: ORAL CANDIDIASIS
     Dosage: 800 MG (400  MG, 1 IN 12 HR), INTRAVENOUS
     Route: 042
     Dates: start: 20041103
  2. VANCOMYCIN [Concomitant]
  3. CLINDAMYCIN (CLINDAMYCIN) [Concomitant]
  4. GENTAMICIN [Concomitant]
  5. IMIPENEM (IMIPENEM) [Concomitant]
  6. LEVOFLOXACIN [Concomitant]
  7. AMPHOTERICIN B [Concomitant]

REACTIONS (6)
  - BLOOD CREATININE INCREASED [None]
  - BLOOD PRESSURE DECREASED [None]
  - PLATELET COUNT DECREASED [None]
  - RENAL DISORDER [None]
  - SEPSIS [None]
  - SINUSITIS [None]
